FAERS Safety Report 4481188-3 (Version None)
Quarter: 2004Q4

REPORT INFORMATION
  Report Type: 
  Country: None (occurrence: None)
  Receive Date: 20041021
  Receipt Date: 20041012
  Transmission Date: 20050328
  Serious: Yes (Hospitalization)
  Sender: FDA-Public Use
  Company Number: JP-JNJFOC-20040809215

PATIENT
  Sex: Male
  Weight: 55.5 kg

DRUGS (8)
  1. GALANTAMINE [Suspect]
     Route: 049
  2. GALANTAMINE [Suspect]
     Route: 049
  3. GALANTAMINE [Suspect]
     Route: 049
  4. INTEBAN [Concomitant]
     Indication: MYALGIA
     Route: 062
  5. MILTAX [Concomitant]
     Indication: MYALGIA
     Route: 062
  6. HALCION [Concomitant]
     Indication: INSOMNIA
     Route: 049
  7. MYONAL [Concomitant]
     Dosage: THREE TABLETS
     Route: 049
  8. PROCYLIN [Concomitant]
     Dosage: TOOK 6 CAPSULES

REACTIONS (10)
  - ABDOMINAL PAIN [None]
  - ALANINE AMINOTRANSFERASE INCREASED [None]
  - ASPARTATE AMINOTRANSFERASE INCREASED [None]
  - BLOOD ALKALINE PHOSPHATASE INCREASED [None]
  - BLOOD BILIRUBIN INCREASED [None]
  - CHOLECYSTITIS [None]
  - CHOLELITHIASIS [None]
  - GASTRIC ULCER [None]
  - JAUNDICE [None]
  - WHITE BLOOD CELL COUNT INCREASED [None]
